FAERS Safety Report 4617893-5 (Version None)
Quarter: 2005Q1

REPORT INFORMATION
  Report Type: 
  Country: None (occurrence: None)
  Receive Date: 20050322
  Receipt Date: 20050309
  Transmission Date: 20050727
  Serious: Yes (Other)
  Sender: FDA-Public Use
  Company Number: 2005042969

PATIENT
  Age: 59 Year
  Sex: Female

DRUGS (4)
  1. NICORETTE [Suspect]
     Indication: SMOKING CESSATION THERAPY
     Dosage: 15 MG TO 10 MG TO 5 MG, TRANSDERMAL
     Route: 062
  2. NICORETTE [Suspect]
     Indication: SMOKING CESSATION THERAPY
     Dosage: (10 MG) CAPSULES QD TO
     Dates: start: 20040909
  3. OTHER ANTI-ASTHMATICS, INHALANTS [Concomitant]
  4. TRIFLUOPERAZINE HCL [Concomitant]

REACTIONS (4)
  - ANXIETY [None]
  - DRUG DEPENDENCE [None]
  - FEELING ABNORMAL [None]
  - STOMACH DISCOMFORT [None]
